FAERS Safety Report 10012157 (Version 1)
Quarter: 2014Q1

REPORT INFORMATION
  Report Type: Spontaneous
  Country: US (occurrence: US)
  Receive Date: 20140314
  Receipt Date: 20140314
  Transmission Date: 20141002
  Serious: Yes (Life-Threatening, Hospitalization, Disabling, Other)
  Sender: FDA-Public Use
  Company Number: US-GLAXOSMITHKLINE-A1064777A

PATIENT
  Age: 39 Year
  Sex: Male

DRUGS (17)
  1. POTIGA [Suspect]
     Indication: CONVULSION
     Dosage: 400MG THREE TIMES PER DAY
     Route: 048
  2. VIMPAT [Concomitant]
  3. PRIMIDONE [Concomitant]
  4. PROPOFOL [Concomitant]
  5. SEROQUEL [Concomitant]
  6. EXELON [Concomitant]
  7. ZONEGRAN [Concomitant]
  8. ZOSYN [Concomitant]
  9. PROTONIX [Concomitant]
  10. MAGNESIUM [Concomitant]
  11. ATIVAN [Concomitant]
  12. ZYVOX [Concomitant]
  13. KEPPRA [Concomitant]
  14. LAMICTAL [Concomitant]
  15. LOVENOX [Concomitant]
  16. LIPITOR [Concomitant]
  17. CARBAMAZEPINE [Concomitant]

REACTIONS (4)
  - Convulsion [Not Recovered/Not Resolved]
  - Sepsis [Not Recovered/Not Resolved]
  - Pneumonia [Not Recovered/Not Resolved]
  - Respiratory failure [Not Recovered/Not Resolved]
